FAERS Safety Report 19088469 (Version 2)
Quarter: 2021Q2

REPORT INFORMATION
  Report Type: Spontaneous
  Country: JP (occurrence: JP)
  Receive Date: 20210402
  Receipt Date: 20210519
  Transmission Date: 20210717
  Serious: Yes (Hospitalization, Other)
  Sender: FDA-Public Use
  Company Number: JP-BIOGEN-2021BI00996129

PATIENT
  Age: 24 Day
  Sex: Male

DRUGS (4)
  1. SPINRAZA [Suspect]
     Active Substance: NUSINERSEN
     Indication: SPINAL MUSCULAR ATROPHY
     Dosage: FOUR LOADING DOSES FOLLOWED BY REGULARLY MAINTENANCE DOSING EVERY 4 MONTHS.
     Route: 037
  2. KETAMINE HYDROCHLORIDE. [Concomitant]
     Active Substance: KETAMINE HYDROCHLORIDE
     Indication: ANAESTHESIA PROCEDURE
     Route: 065
  3. ATROPINE SULFATE HYDRATE [Concomitant]
     Active Substance: ATROPINE SULFATE
     Indication: ANAESTHESIA PROCEDURE
     Route: 065
  4. MIDAZOLAM. [Concomitant]
     Active Substance: MIDAZOLAM
     Indication: ANAESTHESIA PROCEDURE
     Route: 065

REACTIONS (4)
  - Bronchitis viral [Unknown]
  - Platelet count decreased [Recovered/Resolved]
  - Respiratory disorder [Unknown]
  - Pneumonia aspiration [Unknown]
